FAERS Safety Report 14835783 (Version 6)
Quarter: 2021Q1

REPORT INFORMATION
  Report Type: Other
  Country: CA (occurrence: CA)
  Receive Date: 20180502
  Receipt Date: 20210322
  Transmission Date: 20210419
  Serious: Yes (Hospitalization, Other)
  Sender: FDA-Public Use
  Company Number: CA-ROCHE-2113856

PATIENT
  Age: 52 Year
  Sex: Male

DRUGS (10)
  1. ELIQUIS [Concomitant]
     Active Substance: APIXABAN
  2. PERINDOPRIL [Concomitant]
     Active Substance: PERINDOPRIL
  3. SPIRONOLACTONE. [Concomitant]
     Active Substance: SPIRONOLACTONE
  4. TIZANIDINE. [Concomitant]
     Active Substance: TIZANIDINE
  5. BISOPROLOL [Concomitant]
     Active Substance: BISOPROLOL
     Indication: TACHYCARDIA
     Route: 048
     Dates: start: 2016
  6. BISOPROLOL [Concomitant]
     Active Substance: BISOPROLOL
  7. NALTREXONE [Concomitant]
     Active Substance: NALTREXONE
  8. ZOPICLONE [Concomitant]
     Active Substance: ZOPICLONE
  9. OCREVUS [Suspect]
     Active Substance: OCRELIZUMAB
     Indication: PRIMARY PROGRESSIVE MULTIPLE SCLEROSIS
     Dosage: 300 MG AT DAY 0 AND 14, THEN 600 MG EVERY 6 MONTH
     Route: 042
     Dates: start: 20180420
  10. BACLOFEN. [Concomitant]
     Active Substance: BACLOFEN

REACTIONS (8)
  - Inappropriate schedule of product administration [Unknown]
  - Atrial fibrillation [Unknown]
  - Palpitations [Unknown]
  - Infusion related reaction [Recovered/Resolved]
  - Urine analysis abnormal [Unknown]
  - Blood pressure abnormal [Recovered/Resolved]
  - Cerebrovascular accident [Recovered/Resolved with Sequelae]
  - Atrial fibrillation [Recovered/Resolved]

NARRATIVE: CASE EVENT DATE: 20180420
